FAERS Safety Report 9856024 (Version 1)
Quarter: 2014Q1

REPORT INFORMATION
  Report Type: Spontaneous
  Country: US (occurrence: US)
  Receive Date: 20140130
  Receipt Date: 20140130
  Transmission Date: 20141002
  Serious: Yes (Death, Other)
  Sender: FDA-Public Use
  Company Number: US-CELGENEUS-163-21660-14013962

PATIENT
  Sex: 0

DRUGS (2)
  1. ABRAXANE [Suspect]
     Indication: PANCREATIC CARCINOMA METASTATIC
     Route: 050
  2. GEMCITABINE [Suspect]
     Indication: PANCREATIC CARCINOMA
     Route: 065

REACTIONS (5)
  - Death [Fatal]
  - Neutropenia [Unknown]
  - Anaemia [Unknown]
  - Thrombocytopenia [Unknown]
  - Pancreatic carcinoma [Unknown]
